FAERS Safety Report 5877777-1 (Version None)
Quarter: 2008Q3

REPORT INFORMATION
  Report Type: 
  Country: None (occurrence: None)
  Receive Date: 20080911
  Receipt Date: 20080811
  Transmission Date: 20090109
  Serious: No
  Sender: FDA-Public Use
  Company Number: US-BAYER-200818298NA

PATIENT
  Age: 24 Year
  Sex: Female
  Weight: 102 kg

DRUGS (1)
  1. MIRENA [Suspect]
     Indication: CONTRACEPTION
     Route: 015
     Dates: start: 20070511

REACTIONS (10)
  - ABDOMINAL DISTENSION [None]
  - ABDOMINAL PAIN LOWER [None]
  - AMENORRHOEA [None]
  - BREAST TENDERNESS [None]
  - FATIGUE [None]
  - IUCD COMPLICATION [None]
  - NAIL GROWTH ABNORMAL [None]
  - NAUSEA [None]
  - VAGINAL DISCHARGE [None]
  - WEIGHT INCREASED [None]
